FAERS Safety Report 24544836 (Version 1)
Quarter: 2024Q4

REPORT INFORMATION
  Report Type: Report from Study
  Country: US (occurrence: US)
  Receive Date: 20241024
  Receipt Date: 20241024
  Transmission Date: 20250115
  Serious: Yes (Hospitalization)
  Sender: JAZZ
  Company Number: US-JAZZ PHARMACEUTICALS-2024-US-018899

PATIENT
  Sex: Male
  Weight: 9.07 kg

DRUGS (2)
  1. EPIDIOLEX [Suspect]
     Active Substance: CANNABIDIOL
     Indication: Partial seizures
     Dosage: 0.2 MILLILITER, BID FOR 3 DAYS
     Route: 048
     Dates: start: 202407
  2. EPIDIOLEX [Suspect]
     Active Substance: CANNABIDIOL
     Indication: Focal dyscognitive seizures
     Dosage: 0.4 MILLILITER, BID THEREAFTER
     Route: 048

REACTIONS (4)
  - Hospitalisation [Unknown]
  - Weight increased [Unknown]
  - Off label use [Unknown]
  - Off label use [Unknown]

NARRATIVE: CASE EVENT DATE: 20240101
